FAERS Safety Report 4299030-2 (Version None)
Quarter: 2004Q1

REPORT INFORMATION
  Report Type: 
  Country: None (occurrence: None)
  Receive Date: 20040217
  Receipt Date: 20040130
  Transmission Date: 20041129
  Serious: Yes (Hospitalization, Other)
  Sender: FDA-Public Use
  Company Number: 200325307BWH

PATIENT
  Age: 59 Year
  Sex: Male
  Weight: 113.3993 kg

DRUGS (20)
  1. LEVITRA [Suspect]
     Indication: ERECTILE DYSFUNCTION
     Dosage: SEE IMAGE
     Route: 048
     Dates: start: 20030914
  2. LEVITRA [Suspect]
     Indication: ERECTILE DYSFUNCTION
     Dosage: SEE IMAGE
     Route: 048
     Dates: start: 20030921
  3. LEVITRA [Suspect]
     Indication: ERECTILE DYSFUNCTION
     Dosage: SEE IMAGE
     Route: 048
     Dates: start: 20030928
  4. VIAGRA [Concomitant]
  5. MONOPRIL [Concomitant]
  6. NEURONTIN [Concomitant]
  7. NASACORT [Concomitant]
  8. ALLEGRA [Concomitant]
  9. SINGULAIR [Concomitant]
  10. ATIVAN [Concomitant]
  11. ANDROGEL [Concomitant]
  12. ARIMIDEX [Concomitant]
  13. ASPIRIN [Concomitant]
  14. LIPITOR [Concomitant]
  15. LANTUS [Concomitant]
  16. GLUCOVANCE [Concomitant]
  17. DHEA [Concomitant]
  18. VITAMIN B COMPLEX CAP [Concomitant]
  19. MULTIVITAMIN [Concomitant]
  20. CALCIUM [Concomitant]

REACTIONS (16)
  - BLOOD GLUCOSE DECREASED [None]
  - BLOOD GLUCOSE INCREASED [None]
  - CONTUSION [None]
  - DIZZINESS [None]
  - ERECTILE DYSFUNCTION [None]
  - EUPHORIC MOOD [None]
  - FALL [None]
  - FLUSHING [None]
  - HEADACHE [None]
  - LOOSE STOOLS [None]
  - NAUSEA [None]
  - ORTHOSTATIC HYPOTENSION [None]
  - PHARMACEUTICAL PRODUCT COMPLAINT [None]
  - SPONTANEOUS PENILE ERECTION [None]
  - SYNCOPE [None]
  - WEIGHT DECREASED [None]
